FAERS Safety Report 16674268 (Version 1)
Quarter: 2019Q3

REPORT INFORMATION
  Report Type: Spontaneous
  Country: IL (occurrence: IL)
  Receive Date: 20190806
  Receipt Date: 20190806
  Transmission Date: 20191004
  Serious: Yes (Other)
  Sender: FDA-Public Use
  Company Number: IL-INCYTE CORPORATION-2019IN007820

PATIENT

DRUGS (1)
  1. JAKAVI [Suspect]
     Active Substance: RUXOLITINIB
     Indication: MYELOFIBROSIS
     Dosage: 15 MG, QD (10 MG IN MORNING AND 5 MG IN EVENING)
     Route: 065
     Dates: start: 201602

REACTIONS (5)
  - Corneal infection [Unknown]
  - Skin lesion [Unknown]
  - Haemoglobin decreased [Recovered/Resolved]
  - Dysphagia [Unknown]
  - White blood cell count increased [Unknown]
